FAERS Safety Report 7583553-4 (Version None)
Quarter: 2011Q2

REPORT INFORMATION
  Report Type: 
  Country: None (occurrence: None)
  Receive Date: 20110630
  Receipt Date: 20110621
  Transmission Date: 20111010
  Serious: Yes (Other)
  Sender: FDA-Public Use
  Company Number: RU-ROCHE-784429

PATIENT
  Sex: Female
  Weight: 54 kg

DRUGS (2)
  1. PEGASYS [Suspect]
     Indication: HEPATITIS C
     Route: 058
     Dates: start: 20110501
  2. RIBAVIRIN [Concomitant]
     Indication: HEPATITIS C
     Dosage: FREQUENCY: DAILY
     Route: 048
     Dates: start: 20110501

REACTIONS (2)
  - HEPATIC FIBROSIS [None]
  - THROMBOCYTOPENIA [None]
